FAERS Safety Report 16203591 (Version 2)
Quarter: 2019Q2

REPORT INFORMATION
  Report Type: Report from Study
  Country: US (occurrence: US)
  Receive Date: 20190416
  Receipt Date: 20190422
  Transmission Date: 20190711
  Serious: Yes (Hospitalization, Other)
  Sender: FDA-Public Use
  Company Number: US-IPSEN BIOPHARMACEUTICALS, INC.-2019-05293

PATIENT
  Age: 82 Year
  Sex: Female
  Weight: 60.7 kg

DRUGS (1)
  1. ONIVYDE [Suspect]
     Active Substance: IRINOTECAN HYDROCHLORIDE
     Indication: GLIOBLASTOMA
     Dosage: 40 MG/ML AT 120 MG IV, 3ML/10 MG INJECTION, SITE: BRAIN TUMOR
     Route: 042
     Dates: start: 20190329

REACTIONS (2)
  - Encephalopathy [Recovered/Resolved]
  - Delirium [Unknown]

NARRATIVE: CASE EVENT DATE: 201904
